FAERS Safety Report 7427944-0 (Version None)
Quarter: 2011Q2

REPORT INFORMATION
  Report Type: 
  Country: None (occurrence: None)
  Receive Date: 20110421
  Receipt Date: 20110413
  Transmission Date: 20111010
  Serious: Yes (Other)
  Sender: FDA-Public Use
  Company Number: JP-ASTELLAS-2011JP002661

PATIENT
  Age: 56 Year
  Sex: Female
  Weight: 66.2 kg

DRUGS (7)
  1. EPHEDRINE [Concomitant]
     Indication: HYPOTENSION
     Route: 065
  2. CALCIUM CHLORIDE [Concomitant]
     Indication: HYPOTENSION
     Route: 065
  3. DOPAMINE HCL [Concomitant]
     Route: 065
  4. PREDNISOLONE [Concomitant]
     Dosage: 20 MG, UNKNOWN/D
     Route: 065
  5. PROGRAF [Suspect]
     Indication: HYPERTENSION
     Route: 065
  6. CALCIUM BLOCKER [Concomitant]
     Indication: HYPERTENSION
     Route: 065
  7. NON-STEROIDAL ANTIINFLAMMATORY DRUG [Concomitant]
     Route: 065

REACTIONS (3)
  - HYPERTENSION [None]
  - PITUITARY HAEMORRHAGE [None]
  - DIABETES INSIPIDUS [None]
